FAERS Safety Report 13946304 (Version 2)
Quarter: 2018Q1

REPORT INFORMATION
  Report Type: Spontaneous
  Country: US (occurrence: US)
  Receive Date: 20170907
  Receipt Date: 20180118
  Transmission Date: 20180508
  Serious: Yes (Hospitalization, Other)
  Sender: FDA-Public Use
  Company Number: US-BAYER-2017-171200

PATIENT
  Age: 25 Year
  Sex: Female
  Weight: 68.03 kg

DRUGS (3)
  1. MIRENA [Suspect]
     Active Substance: LEVONORGESTREL
     Indication: CONTRACEPTION
     Dosage: 20 MCG/24HR, CONT
     Route: 015
     Dates: start: 20110323, end: 20160527
  2. MICONAZOLE. [Concomitant]
     Active Substance: MICONAZOLE
  3. MIRENA [Suspect]
     Active Substance: LEVONORGESTREL
     Indication: CONTRACEPTION

REACTIONS (10)
  - Amenorrhoea [None]
  - Genital haemorrhage [None]
  - Drug ineffective [None]
  - Pregnancy with contraceptive device [None]
  - Stillbirth [None]
  - Depression [None]
  - Device use issue [None]
  - Uterine perforation [None]
  - Device issue [None]
  - Menstruation irregular [None]

NARRATIVE: CASE EVENT DATE: 2011
